FAERS Safety Report 9176526 (Version 1)
Quarter: 2013Q1

REPORT INFORMATION
  Report Type: Spontaneous
  Country: US (occurrence: None)
  Receive Date: 20130320
  Receipt Date: 20130320
  Transmission Date: 20140127
  Serious: Yes (Hospitalization)
  Sender: FDA-Public Use
  Company Number: None

PATIENT
  Age: 70 Year
  Sex: Female
  Weight: 87.09 kg

DRUGS (12)
  1. VALCADE, NOT PROVIDED MILLENNIUM [Suspect]
     Dosage: 1.3 MG/M2 SQ DAY 1, 4, B,1L Q 28 DAYS
     Dates: start: 20130211, end: 20130211
  2. REVLIMID [Suspect]
     Dosage: 25 MG PO QD DAY 1-34 Q 28 DAYS
     Route: 048
     Dates: start: 20130211
  3. DECADRON [Concomitant]
  4. AMLODIPINE [Concomitant]
  5. ATORVASTATIN CALCIUM [Concomitant]
  6. GLIPLZIDE [Concomitant]
  7. HYDRALAZINE [Concomitant]
  8. HYDROCHLORITHLAZIDE [Concomitant]
  9. HYDROCODEONE-ACETAMINOPHEN [Concomitant]
  10. VITAMIN D [Concomitant]
  11. ASPIRIN [Concomitant]
  12. ACYCLOVIR [Concomitant]

REACTIONS (5)
  - Dehydration [None]
  - Hypokalaemia [None]
  - Urinary tract infection [None]
  - Asthenia [None]
  - Abdominal pain [None]
